FAERS Safety Report 17021390 (Version 3)
Quarter: 2020Q1

REPORT INFORMATION
  Report Type: Spontaneous
  Country: US (occurrence: US)
  Receive Date: 20191112
  Receipt Date: 20200227
  Transmission Date: 20200409
  Serious: No
  Sender: FDA-Public Use
  Company Number: US-PFIZER INC-2019484499

PATIENT
  Age: 61 Year
  Sex: Female
  Weight: 54.43 kg

DRUGS (8)
  1. LYRICA [Suspect]
     Active Substance: PREGABALIN
     Dosage: 225 MG, DAILY (3-75^S A DAY)
  2. LYRICA [Suspect]
     Active Substance: PREGABALIN
     Indication: FIBROMYALGIA
     Dosage: 375 MG, DAILY (2-75MG CAPSULES AND 1-50MG CAPSULE IN MORNING,75MG CAPSULE AND 50MG CAPSULE 2 MORE)
     Dates: start: 2017
  3. LYRICA [Suspect]
     Active Substance: PREGABALIN
     Indication: RHEUMATOID ARTHRITIS
     Dosage: 375 MG, DAILY (2-75MG CAPSULES AND 1-50MG CAPSULE IN MORNING,75MG CAPSULE AND 50MG CAPSULE 2 MORE)
     Dates: start: 2017
  4. ENBREL [Concomitant]
     Active Substance: ETANERCEPT
     Indication: RHEUMATOID ARTHRITIS
     Dosage: 50 MG, WEEKLY;(ONCE WEEKLY)
     Route: 058
  5. LYRICA [Suspect]
     Active Substance: PREGABALIN
     Dosage: 75 MG, 3X/DAY 1 PO (PER ORAL) TID (THREE TIMES A DAY)
     Route: 048
  6. METHOTREXATE. [Concomitant]
     Active Substance: METHOTREXATE
     Indication: RHEUMATOID ARTHRITIS
     Dosage: 0.6 MG, WEEKLY
  7. LYRICA [Suspect]
     Active Substance: PREGABALIN
     Dosage: 150 MG, DAILY  (3-50^S A DAY)
  8. LYRICA [Suspect]
     Active Substance: PREGABALIN
     Dosage: 50 MG, 3X/DAY (1 CAPSULE(S) TID (THREE TIMES A DAY)

REACTIONS (5)
  - Therapeutic response unexpected [Recovered/Resolved]
  - Intentional product misuse [Unknown]
  - Therapeutic product effect incomplete [Recovered/Resolved]
  - Wrong dose [Recovered/Resolved]
  - Pre-existing condition improved [Recovered/Resolved]
